FAERS Safety Report 7984496-4 (Version None)
Quarter: 2011Q4

REPORT INFORMATION
  Report Type: 
  Country: None (occurrence: None)
  Receive Date: 20111216
  Receipt Date: 20111205
  Transmission Date: 20120403
  Serious: Yes (Hospitalization, Other)
  Sender: FDA-Public Use
  Company Number: MX-SANOFI-AVENTIS-2011SA079960

PATIENT
  Age: 73 Year
  Sex: Female

DRUGS (3)
  1. FUROSEMIDE [Concomitant]
     Route: 048
  2. FOLIC ACID [Concomitant]
     Route: 048
  3. LANTUS [Suspect]
     Indication: TYPE 2 DIABETES MELLITUS
     Route: 058
     Dates: start: 20080101

REACTIONS (10)
  - NEPHROPATHY [None]
  - RENAL DISORDER [None]
  - HYPERGLYCAEMIA [None]
  - DIABETIC FOOT [None]
  - ANORECTAL DISCOMFORT [None]
  - CARDIAC DISORDER [None]
  - HICCUPS [None]
  - VULVOVAGINAL BURNING SENSATION [None]
  - DYSPNOEA [None]
  - HYPERTENSION [None]
